FAERS Safety Report 18514481 (Version 1)
Quarter: 2020Q4

REPORT INFORMATION
  Report Type: Spontaneous
  Country: RO (occurrence: RO)
  Receive Date: 20201118
  Receipt Date: 20201118
  Transmission Date: 20210114
  Serious: Yes (Other)
  Sender: FDA-Public Use
  Company Number: RO-SUN PHARMACEUTICAL INDUSTRIES LTD-2019RR-205819

PATIENT
  Sex: Male

DRUGS (1)
  1. SOTRET [Suspect]
     Active Substance: ISOTRETINOIN
     Indication: ACNE
     Dosage: 130 DOSAGE FORM, UNK
     Route: 065

REACTIONS (3)
  - Suicide attempt [Unknown]
  - Sensation of foreign body [Unknown]
  - Mental fatigue [Unknown]
